FAERS Safety Report 7620791-6 (Version None)
Quarter: 2011Q3

REPORT INFORMATION
  Report Type: 
  Country: None (occurrence: None)
  Receive Date: 20110719
  Receipt Date: 20110708
  Transmission Date: 20111222
  Serious: Yes (Other)
  Sender: FDA-Public Use
  Company Number: PHHY2011TN40166

PATIENT
  Age: 42 Year
  Sex: Female
  Weight: 62 kg

DRUGS (3)
  1. TACROLIMUS [Interacting]
     Indication: RENAL TRANSPLANT
     Dosage: 5 MG/DAY
     Route: 048
  2. TACROLIMUS [Interacting]
     Dosage: 3.5 MG/DAY
     Route: 048
  3. FLUCONAZOLE [Suspect]
     Dosage: 200 MG/DAY
     Route: 048

REACTIONS (5)
  - HYPERGLYCAEMIA [None]
  - BLOOD CREATININE INCREASED [None]
  - DRUG INTERACTION [None]
  - HEPATOTOXICITY [None]
  - DRUG LEVEL INCREASED [None]
